FAERS Safety Report 11694505 (Version 1)
Quarter: 2015Q4

REPORT INFORMATION
  Report Type: Spontaneous
  Country: FR (occurrence: FR)
  Receive Date: 20151103
  Receipt Date: 20151103
  Transmission Date: 20160304
  Serious: Yes (Life-Threatening, Hospitalization)
  Sender: FDA-Public Use
  Company Number: FR-PFIZER INC-2015359014

PATIENT
  Age: 69 Year
  Sex: Female
  Weight: 66 kg

DRUGS (7)
  1. XARELTO [Concomitant]
     Active Substance: RIVAROXABAN
     Dosage: 20, UNK
  2. FLECAINE [Suspect]
     Active Substance: FLECAINIDE
     Dosage: 50 UNK, 1X/DAY
  3. LERCAN [Concomitant]
     Active Substance: LERCANIDIPINE
     Dosage: 10,UNK
  4. BISOPROLOL [Concomitant]
     Active Substance: BISOPROLOL
     Dosage: 10, UNK
  5. KARDEGIC [Concomitant]
     Active Substance: ASPIRIN LYSINE
     Dosage: 75, UNK
  6. OLMETEC [Suspect]
     Active Substance: OLMESARTAN MEDOXOMIL
     Indication: HYPERTENSION
     Dosage: 40 MG, DAILY
     Route: 048
     Dates: start: 2007, end: 201503
  7. AMLOR [Suspect]
     Active Substance: AMLODIPINE BESYLATE
     Dosage: 5 UNK, 1X/DAY
     Route: 065

REACTIONS (3)
  - Renal failure [Unknown]
  - Cardio-respiratory arrest [Unknown]
  - Enteritis [Unknown]

NARRATIVE: CASE EVENT DATE: 2015
